FAERS Safety Report 7313878-9 (Version None)
Quarter: 2011Q1

REPORT INFORMATION
  Report Type: 
  Country: None (occurrence: None)
  Receive Date: 20110215
  Receipt Date: 20110202
  Transmission Date: 20110831
  Serious: Yes (Disabling)
  Sender: FDA-Public Use
  Company Number: 20110093

PATIENT
  Age: 65 Year
  Sex: Male

DRUGS (2)
  1. DEXAMETHASONE SODIUM PHOSPHATE INJECTION, USP [Suspect]
     Indication: MORTON'S NEUROMA
     Dosage: 4 MG/ML INJECTION NOS
     Dates: start: 20100921, end: 20101012
  2. DEXAMETHASONE SODIUM PHOSPHATE INJECTION, USP [Suspect]
     Indication: PAIN
     Dosage: 4 MG/ML INJECTION NOS
     Dates: start: 20100921, end: 20101012

REACTIONS (4)
  - FEELING HOT [None]
  - INJECTION SITE ERYTHEMA [None]
  - OEDEMA PERIPHERAL [None]
  - INJECTION SITE PAIN [None]
